FAERS Safety Report 5486959-2 (Version None)
Quarter: 2007Q3

REPORT INFORMATION
  Report Type: 
  Country: None (occurrence: None)
  Receive Date: 20070925
  Receipt Date: 20070709
  Transmission Date: 20080115
  Serious: No
  Sender: FDA-Public Use
  Company Number: 2007US001234

PATIENT
  Age: 75 Year
  Sex: Male

DRUGS (1)
  1. VESICARE [Suspect]
     Indication: PROSTATECTOMY
     Dosage: 5MG UID/QD
     Dates: start: 20070401

REACTIONS (4)
  - ARTHRITIS [None]
  - DRY MOUTH [None]
  - RASH [None]
  - VISION BLURRED [None]
